FAERS Safety Report 7422597-X (Version None)
Quarter: 2011Q2

REPORT INFORMATION
  Report Type: 
  Country: None (occurrence: None)
  Receive Date: 20110419
  Receipt Date: 20110405
  Transmission Date: 20111010
  Serious: Yes (Other)
  Sender: FDA-Public Use
  Company Number: IT-JNJFOC-20110403561

PATIENT

DRUGS (3)
  1. PREDNISONE [Concomitant]
  2. INFLIXIMAB, RECOMBINANT [Suspect]
     Indication: UVEITIS
     Route: 042
  3. INFLIXIMAB, RECOMBINANT [Suspect]
     Dosage: 13TH INFUSION
     Route: 042

REACTIONS (4)
  - RASH [None]
  - RESPIRATORY DISTRESS [None]
  - INFUSION RELATED REACTION [None]
  - HYPOTENSION [None]
